FAERS Safety Report 8027000-7 (Version None)
Quarter: 2012Q1

REPORT INFORMATION
  Report Type: 
  Country: None (occurrence: None)
  Receive Date: 20120106
  Receipt Date: 20120104
  Transmission Date: 20120608
  Serious: Yes (Other)
  Sender: FDA-Public Use
  Company Number: US-PFIZER INC-2012003411

PATIENT
  Sex: Male

DRUGS (3)
  1. LYRICA [Suspect]
     Dosage: UNK
  2. LIPITOR [Suspect]
     Dosage: UNK
  3. SPIRIVA [Suspect]
     Dosage: UNK

REACTIONS (3)
  - BACK DISORDER [None]
  - NERVE INJURY [None]
  - CHRONIC OBSTRUCTIVE PULMONARY DISEASE [None]
